FAERS Safety Report 20549611 (Version 2)
Quarter: 2022Q1

REPORT INFORMATION
  Report Type: Report from Study
  Country: CA (occurrence: CA)
  Receive Date: 20220304
  Receipt Date: 20220324
  Transmission Date: 20220423
  Serious: Yes (Death)
  Sender: FDA-Public Use
  Company Number: CA-ABBVIE-22K-028-4301129-00

PATIENT
  Age: 74 Year
  Sex: Male

DRUGS (4)
  1. CARBIDOPA\LEVODOPA [Suspect]
     Active Substance: CARBIDOPA\LEVODOPA
     Indication: Parkinson^s disease
     Dosage: DUODOPA LEVODOPA 20MG/ML CARBIDOPA MONOHYDRATE 5MG/ML 8 ML MD 6.9 ML CR 4.0 ML ED 2 TIMES
     Route: 050
     Dates: start: 20151019
  2. CARBIDOPA\LEVODOPA [Suspect]
     Active Substance: CARBIDOPA\LEVODOPA
  3. SINEMET [Concomitant]
     Active Substance: CARBIDOPA\LEVODOPA
     Indication: Tremor
     Dosage: 1 TAB, MAX 2 TABS PER DAY
     Route: 048
     Dates: start: 20191015
  4. LEVODOPA [Concomitant]
     Active Substance: LEVODOPA
     Indication: Product used for unknown indication
     Dates: start: 2019

REACTIONS (4)
  - On and off phenomenon [Fatal]
  - Tremor [Fatal]
  - Completed suicide [Fatal]
  - Dyskinesia [Unknown]

NARRATIVE: CASE EVENT DATE: 20220127
